FAERS Safety Report 25834003 (Version 1)
Quarter: 2025Q3

REPORT INFORMATION
  Report Type: Spontaneous
  Country: US (occurrence: US)
  Receive Date: 20250923
  Receipt Date: 20250923
  Transmission Date: 20251021
  Serious: Yes (Other)
  Sender: GLAXOSMITHKLINE
  Company Number: US-GSK-US2025106089

PATIENT
  Sex: Male

DRUGS (1)
  1. BREO ELLIPTA [Suspect]
     Active Substance: FLUTICASONE FUROATE\VILANTEROL TRIFENATATE
     Indication: Lung neoplasm malignant
     Dosage: UNK, QD (100/25 MCG)

REACTIONS (3)
  - Lung neoplasm malignant [Unknown]
  - Wrong technique in device usage process [Unknown]
  - Off label use [Unknown]
